FAERS Safety Report 6996912 (Version 2)
Quarter: 2015Q3

REPORT INFORMATION
  Report Type: Spontaneous
  Country: HU (occurrence: HU)
  Receive Date: 20090518
  Receipt Date: 20150901
  Transmission Date: 20151125
  Serious: Yes (Hospitalization)
  Sender: FDA-Public Use
  Company Number: HU-B.I. PHARMACEUTICALS,INC./RIDGEFIELD-2009-DE-03716GD

PATIENT
  Age: 39 Year
  Sex: Male

DRUGS (5)
  1. ACETYLSALICYLIC ACID [Suspect]
     Active Substance: ASPIRIN
     Indication: ANTIPLATELET THERAPY
     Dosage: 100 MG
     Route: 065
  2. CLOPIDOGREL [Suspect]
     Active Substance: CLOPIDOGREL BISULFATE
     Indication: ANTIPLATELET THERAPY
     Dosage: 75 MG
     Route: 065
  3. DICLOFENAC [Suspect]
     Active Substance: DICLOFENAC
     Indication: INTERVERTEBRAL DISC PROTRUSION
     Dosage: 150 MG
     Route: 065
     Dates: start: 200605
  4. SIROLIMUS. [Suspect]
     Active Substance: SIROLIMUS
     Indication: CARDIOVASCULAR EVENT PROPHYLAXIS
     Route: 065
  5. MOBIC [Suspect]
     Active Substance: MELOXICAM
     Indication: INTERVERTEBRAL DISC PROTRUSION
     Dosage: 30 MG
     Route: 065
     Dates: start: 200605

REACTIONS (3)
  - Vascular stent thrombosis [Recovered/Resolved]
  - Drug interaction [Recovered/Resolved]
  - Acute myocardial infarction [Recovered/Resolved]

NARRATIVE: CASE EVENT DATE: 200605
